FAERS Safety Report 9493123 (Version 1)
Quarter: 2013Q3

REPORT INFORMATION
  Report Type: Spontaneous
  Country: FR (occurrence: FR)
  Receive Date: 20130902
  Receipt Date: 20130902
  Transmission Date: 20140515
  Serious: Yes (Hospitalization)
  Sender: FDA-Public Use
  Company Number: FR-ROCHE-1267232

PATIENT
  Age: 66 Year
  Sex: Female

DRUGS (1)
  1. XELODA [Suspect]
     Indication: MALIGNANT NEOPLASM PROGRESSION
     Dosage: 500 MG
     Route: 048
     Dates: start: 201301, end: 20130507

REACTIONS (1)
  - Posterior reversible encephalopathy syndrome [Recovered/Resolved]
